FAERS Safety Report 6405780-1 (Version None)
Quarter: 2009Q4

REPORT INFORMATION
  Report Type: 
  Country: None (occurrence: None)
  Receive Date: 20091016
  Receipt Date: 20091016
  Transmission Date: 20100525
  Serious: Yes (Life-Threatening, Hospitalization)
  Sender: FDA-Public Use
  Company Number: None

PATIENT
  Sex: Female
  Weight: 52.8 kg

DRUGS (13)
  1. METHOTREXATE [Suspect]
     Indication: ACUTE LYMPHOCYTIC LEUKAEMIA
     Dosage: 300MG(INCREASE 50MG/M2/DOSE) EVERY 10 DAYS IV
     Route: 042
     Dates: start: 20090903
  2. METHOTREXATE [Suspect]
     Indication: ACUTE LYMPHOCYTIC LEUKAEMIA
     Dosage: 300MG(INCREASE 50MG/M2/DOSE) EVERY 10 DAYS IV
     Route: 042
     Dates: start: 20090915
  3. METHOTREXATE [Suspect]
     Indication: ACUTE LYMPHOCYTIC LEUKAEMIA
     Dosage: 300MG(INCREASE 50MG/M2/DOSE) EVERY 10 DAYS IV
     Route: 042
     Dates: start: 20090924
  4. VINCRISTINE [Concomitant]
  5. PEGASPARAGINASE [Concomitant]
  6. ZOFRAN [Concomitant]
  7. DIFLUCAN [Concomitant]
  8. PREVACID [Concomitant]
  9. CHLORHEXIDINE (PERIDEX) [Concomitant]
  10. DOCUSATE (COLACE) [Concomitant]
  11. MIRALAX [Concomitant]
  12. SENNOSIDES (SENNA) [Concomitant]
  13. SULFAMETHOXAZOLE-TRIMETHOPRIM (BACTRIM DS, SEPTRA DS) [Concomitant]

REACTIONS (11)
  - ABDOMINAL PAIN [None]
  - DEHYDRATION [None]
  - EPISTAXIS [None]
  - HYPERTENSION [None]
  - MALAISE [None]
  - NAUSEA [None]
  - PYREXIA [None]
  - RENAL FAILURE ACUTE [None]
  - RENAL TUBULAR NECROSIS [None]
  - TUBULOINTERSTITIAL NEPHRITIS [None]
  - VOMITING [None]
